FAERS Safety Report 5142027-0 (Version None)
Quarter: 2006Q4

REPORT INFORMATION
  Report Type: 
  Country: None (occurrence: None)
  Receive Date: 20061102
  Receipt Date: 20061018
  Transmission Date: 20070319
  Serious: Yes (Hospitalization)
  Sender: FDA-Public Use
  Company Number: US-AMGEN-US197454

PATIENT
  Sex: Female

DRUGS (2)
  1. ENBREL [Suspect]
     Indication: RHEUMATOID ARTHRITIS
     Route: 058
     Dates: start: 20050816
  2. METHOTREXATE [Concomitant]
     Route: 048
     Dates: start: 20030201

REACTIONS (3)
  - HIP ARTHROPLASTY [None]
  - JOINT ARTHROPLASTY [None]
  - UPPER RESPIRATORY TRACT INFECTION [None]
